FAERS Safety Report 20776273 (Version 1)
Quarter: 2022Q2

REPORT INFORMATION
  Report Type: Report from Study
  Country: AR (occurrence: AR)
  Receive Date: 20220502
  Receipt Date: 20220502
  Transmission Date: 20220721
  Serious: Yes (Death, Hospitalization)
  Sender: FDA-Public Use
  Company Number: AR-BIOGEN-2022BI01119227

PATIENT
  Age: 6 Year
  Sex: Male

DRUGS (7)
  1. SPINRAZA [Suspect]
     Active Substance: NUSINERSEN
     Indication: Spinal muscular atrophy
     Route: 037
     Dates: start: 20171016, end: 20220114
  2. SUCRALFATE [Concomitant]
     Active Substance: SUCRALFATE
     Indication: Product used for unknown indication
     Dosage: THREE DOSES PER DAY
     Route: 065
  3. ALBUTEROL [Concomitant]
     Active Substance: ALBUTEROL
     Indication: Product used for unknown indication
     Route: 065
  4. FLUTICASONE [Concomitant]
     Active Substance: FLUTICASONE
     Indication: Product used for unknown indication
     Dosage: 1 PUFF PER DAY
     Route: 065
  5. Ulcozol [Concomitant]
     Indication: Product used for unknown indication
     Dosage: TWO DOSES PER DAY
     Route: 065
  6. Tri-vi-sol [Concomitant]
     Indication: Product used for unknown indication
     Route: 065
  7. IRON [Concomitant]
     Active Substance: IRON
     Indication: Product used for unknown indication
     Route: 065

REACTIONS (2)
  - Cardiac failure [Fatal]
  - Seizure [Unknown]

NARRATIVE: CASE EVENT DATE: 20220301
